FAERS Safety Report 22091408 (Version 1)
Quarter: 2023Q1

REPORT INFORMATION
  Report Type: Spontaneous
  Country: US (occurrence: US)
  Receive Date: 20230314
  Receipt Date: 20230314
  Transmission Date: 20230418
  Serious: No
  Sender: FDA-Public Use
  Company Number: US-JNJFOC-20230325323

PATIENT
  Age: 78 Year
  Sex: Female
  Weight: 52.210 kg

DRUGS (3)
  1. OPSUMIT [Suspect]
     Active Substance: MACITENTAN
     Indication: Pulmonary arterial hypertension
     Route: 048
  2. REMODULIN [Suspect]
     Active Substance: TREPROSTINIL
     Indication: Pulmonary arterial hypertension
     Dosage: 0.0645 G/KG
     Route: 058
     Dates: start: 20190424
  3. ADEMPAS [Suspect]
     Active Substance: RIOCIGUAT
     Indication: Product used for unknown indication
     Route: 065

REACTIONS (8)
  - Infusion site pain [Unknown]
  - Infusion site swelling [Unknown]
  - Infusion site irritation [Unknown]
  - Malaise [Unknown]
  - Neuralgia [Unknown]
  - Device dislocation [Unknown]
  - Diarrhoea [Unknown]
  - Weight decreased [Unknown]
